FAERS Safety Report 4399585-3 (Version None)
Quarter: 2004Q3

REPORT INFORMATION
  Report Type: 
  Country: None (occurrence: None)
  Receive Date: 20040712
  Receipt Date: 20040621
  Transmission Date: 20050211
  Serious: No
  Sender: FDA-Public Use
  Company Number: D01200402284

PATIENT

DRUGS (6)
  1. (FONDAPARINUX) - SOLUTION - UNIT DOSE: UNKNOWN [Suspect]
     Indication: MYOCARDIAL INFARCTION
     Dosage: 2.5 MG QD
     Route: 058
     Dates: start: 20030830, end: 20030905
  2. ASPIRIN [Concomitant]
  3. CLOPIDOGREL [Concomitant]
  4. ENALAPRIL MALEATE [Concomitant]
  5. ATORVASTATIN CALCIUM [Concomitant]
  6. FUROSEMIDE [Concomitant]

REACTIONS (1)
  - CATHETER RELATED COMPLICATION [None]
